FAERS Safety Report 18393875 (Version 3)
Quarter: 2020Q4

REPORT INFORMATION
  Report Type: Report from Study
  Country: US (occurrence: US)
  Receive Date: 20201016
  Receipt Date: 20201223
  Transmission Date: 20210114
  Serious: Yes (Hospitalization)
  Sender: FDA-Public Use
  Company Number: US-AGIOS-2010US02201

PATIENT

DRUGS (1)
  1. TIBSOVO [Suspect]
     Active Substance: IVOSIDENIB
     Indication: ACUTE MYELOID LEUKAEMIA
     Dosage: 250 MILLIGRAM QD
     Route: 048
     Dates: start: 20200922

REACTIONS (5)
  - Platelet count decreased [Unknown]
  - Blood test abnormal [Unknown]
  - Off label use [Unknown]
  - Headache [Unknown]
  - Malaise [Recovered/Resolved]

NARRATIVE: CASE EVENT DATE: 20200922
